FAERS Safety Report 9139614 (Version 2)
Quarter: 2013Q1

REPORT INFORMATION
  Report Type: Spontaneous
  Country: GB (occurrence: GB)
  Receive Date: 20130305
  Receipt Date: 20130312
  Transmission Date: 20140127
  Serious: Yes (Other)
  Sender: FDA-Public Use
  Company Number: GB-JNJFOC-20130300229

PATIENT
  Sex: 0

DRUGS (3)
  1. DOXORUBICIN [Suspect]
     Indication: NEOPLASM
     Route: 042
  2. DOXORUBICIN [Suspect]
     Indication: NEOPLASM
     Route: 042
  3. AVE1642 [Interacting]
     Indication: NEOPLASM
     Dosage: SLOW INTRAVENOUS INFUSION ON DAY 1 OF EACH 21-DAY CYCLE (Q21)
     Route: 042

REACTIONS (3)
  - Thrombocytopenia [Unknown]
  - Drug interaction [Unknown]
  - Off label use [Unknown]
